FAERS Safety Report 4486858-9 (Version None)
Quarter: 2004Q3

REPORT INFORMATION
  Report Type: 
  Country: None (occurrence: None)
  Receive Date: 20040921
  Receipt Date: 20030827
  Transmission Date: 20050211
  Serious: Yes (Other)
  Sender: FDA-Public Use
  Company Number: 163-20785-03080722

PATIENT

DRUGS (2)
  1. THALOMID [Suspect]
     Indication: COLORECTAL CANCER
  2. IRINOTECAN HCL [Concomitant]

REACTIONS (1)
  - DEEP VEIN THROMBOSIS [None]
